FAERS Safety Report 5960009-3 (Version None)
Quarter: 2008Q4

REPORT INFORMATION
  Report Type: 
  Country: None (occurrence: None)
  Receive Date: 20081120
  Receipt Date: 20081111
  Transmission Date: 20090506
  Serious: Yes (Other)
  Sender: FDA-Public Use
  Company Number: AR-JNJFOC-20081102802

PATIENT
  Age: 52 Year
  Sex: Female
  Weight: 58 kg

DRUGS (1)
  1. RISPERDAL [Suspect]
     Indication: INSOMNIA
     Route: 065

REACTIONS (5)
  - INSOMNIA [None]
  - OFF LABEL USE [None]
  - SOMNOLENCE [None]
  - SPEECH DISORDER [None]
  - TONGUE DISORDER [None]
